FAERS Safety Report 16898342 (Version 1)
Quarter: 2019Q4

REPORT INFORMATION
  Report Type: Spontaneous
  Country: NL (occurrence: NL)
  Receive Date: 20191009
  Receipt Date: 20191009
  Transmission Date: 20200122
  Serious: Yes (Hospitalization)
  Sender: FDA-Public Use
  Company Number: NL-MYLANLABS-2019M1094201

PATIENT
  Age: 2 Year
  Sex: Male

DRUGS (3)
  1. DIAZOXIDE [Interacting]
     Active Substance: DIAZOXIDE
     Indication: HYPERINSULINISM
     Dosage: DOSE INCREASED AFTER 8 DAYS
     Route: 048
  2. DIAZOXIDE [Interacting]
     Active Substance: DIAZOXIDE
     Dosage: ADR DEVELOPED 3 DAYS AFTER THIS DOSE INCREASE
     Route: 048
  3. HYDROCHLOROTHIAZIDE. [Suspect]
     Active Substance: HYDROCHLOROTHIAZIDE
     Indication: HYPERINSULINISM
     Dosage: 2 MILLIGRAM/KILOGRAM, QD
     Route: 048

REACTIONS (6)
  - Rectal haemorrhage [Recovering/Resolving]
  - Petechiae [Recovering/Resolving]
  - Haematemesis [Recovering/Resolving]
  - Immune thrombocytopenic purpura [Recovered/Resolved]
  - Epistaxis [Recovering/Resolving]
  - Drug interaction [Recovering/Resolving]
